FAERS Safety Report 4881989-3 (Version None)
Quarter: 2006Q1

REPORT INFORMATION
  Report Type: 
  Country: None (occurrence: None)
  Receive Date: 20060113
  Receipt Date: 20060113
  Transmission Date: 20060701
  Serious: Yes (Other)
  Sender: FDA-Public Use
  Company Number: None

PATIENT
  Age: 44 Year
  Sex: Male
  Weight: 45.3597 kg

DRUGS (2)
  1. CEFTRIAXONE [Suspect]
     Indication: ARTHRITIS BACTERIAL
     Dosage: 1 GM QD IV
     Route: 042
     Dates: start: 20060109, end: 20060110
  2. METRONIDAZOLE [Concomitant]

REACTIONS (2)
  - DIARRHOEA [None]
  - INFUSION RELATED REACTION [None]
